FAERS Safety Report 9101216 (Version 2)
Quarter: 2013Q1

REPORT INFORMATION
  Report Type: Spontaneous
  Country: CH (occurrence: CH)
  Receive Date: 20130217
  Receipt Date: 20130301
  Transmission Date: 20140127
  Serious: Yes (Other)
  Sender: FDA-Public Use
  Company Number: CH-BRISTOL-MYERS SQUIBB COMPANY-17357252

PATIENT
  Age: 34 Year
  Sex: Male

DRUGS (2)
  1. ABILIFY TABS [Suspect]
     Indication: SCHIZOPHRENIA, PARANOID TYPE
     Dosage: INITIAL DOSE 5 MG
     Dates: start: 2007
  2. LEPONEX [Suspect]
     Dates: start: 2007

REACTIONS (3)
  - Hyperlipidaemia [Not Recovered/Not Resolved]
  - Drug level increased [Not Recovered/Not Resolved]
  - Overdose [Unknown]
